FAERS Safety Report 7114127-7 (Version None)
Quarter: 2010Q4

REPORT INFORMATION
  Report Type: 
  Country: None (occurrence: None)
  Receive Date: 20101119
  Receipt Date: 20101111
  Transmission Date: 20110411
  Serious: Yes (Other)
  Sender: FDA-Public Use
  Company Number: US-SANOFI-AVENTIS-2010SA069804

PATIENT
  Age: 57 Year
  Sex: Female

DRUGS (2)
  1. APIDRA [Suspect]
     Indication: TYPE 2 DIABETES MELLITUS
     Dosage: 20-25 UNITS
     Route: 058
     Dates: start: 20090101
  2. SOLOSTAR [Suspect]
     Dates: start: 20090101

REACTIONS (3)
  - DERMAL CYST [None]
  - RENAL FAILURE CHRONIC [None]
  - STAPHYLOCOCCAL INFECTION [None]
